FAERS Safety Report 19720956 (Version 1)
Quarter: 2021Q3

REPORT INFORMATION
  Report Type: Report from Study
  Country: None (occurrence: BE)
  Receive Date: 20210819
  Receipt Date: 20210819
  Transmission Date: 20211014
  Serious: Yes (Hospitalization)
  Sender: FDA-Public Use
  Company Number: BE-ABBVIE-19P-013-2716458-00

PATIENT
  Age: 64 Year
  Sex: Female

DRUGS (13)
  1. IMODIUM [Concomitant]
     Active Substance: LOPERAMIDE HYDROCHLORIDE
     Indication: COLITIS ULCERATIVE
     Dosage: AS REQ
     Route: 048
     Dates: start: 200507, end: 2018
  2. NORTRILEN [Concomitant]
     Active Substance: NORTRIPTYLINE
     Indication: COLITIS ULCERATIVE
     Route: 048
     Dates: start: 2012, end: 2018
  3. BEFACT FORTE [Concomitant]
     Indication: VITAMIN SUPPLEMENTATION
     Dosage: AS REQ
     Route: 048
     Dates: start: 2012, end: 2018
  4. ENTYVIO [Concomitant]
     Active Substance: VEDOLIZUMAB
     Route: 041
     Dates: start: 20180518
  5. HUMIRA [Suspect]
     Active Substance: ADALIMUMAB
     Indication: COLITIS ULCERATIVE
     Route: 058
     Dates: start: 20091109, end: 20180220
  6. HUMIRA [Suspect]
     Active Substance: ADALIMUMAB
     Route: 058
     Dates: start: 20180220, end: 20180322
  7. PENTASA [Concomitant]
     Active Substance: MESALAMINE
     Indication: COLITIS ULCERATIVE
     Route: 048
     Dates: start: 20021107, end: 2018
  8. NORTRILEN [Concomitant]
     Active Substance: NORTRIPTYLINE
     Indication: DEPRESSION
     Route: 048
     Dates: start: 2018, end: 2018
  9. NESTROLAN [Concomitant]
     Indication: DEPRESSION
     Route: 048
     Dates: start: 2017, end: 2018
  10. ZOLPIDEM [Concomitant]
     Active Substance: ZOLPIDEM TARTRATE
     Indication: INSOMNIA
     Dosage: AS REQ
     Route: 048
     Dates: start: 201607
  11. EBASTINE [Concomitant]
     Active Substance: EBASTINE
     Indication: ALLERGY PROPHYLAXIS
     Dosage: AS REQ
     Route: 048
     Dates: start: 201802, end: 2018
  12. ENTYVIO [Concomitant]
     Active Substance: VEDOLIZUMAB
     Indication: COLITIS ULCERATIVE
     Route: 041
     Dates: start: 20180322, end: 20180322
  13. MOVICOL [Concomitant]
     Active Substance: POLYETHYLENE GLYCOL 3350\POTASSIUM CHLORIDE\SODIUM BICARBONATE\SODIUM CHLORIDE
     Indication: CONSTIPATION PROPHYLAXIS
     Dosage: AS REQ
     Route: 048
     Dates: start: 2017, end: 2018

REACTIONS (1)
  - Bipolar disorder [Recovered/Resolved]

NARRATIVE: CASE EVENT DATE: 20181010
